FAERS Safety Report 4646041-0 (Version None)
Quarter: 2005Q2

REPORT INFORMATION
  Report Type: 
  Country: None (occurrence: None)
  Receive Date: 20050422
  Receipt Date: 20050422
  Transmission Date: 20051028
  Serious: No
  Sender: FDA-Public Use
  Company Number: None

PATIENT
  Age: 49 Year
  Sex: Female
  Weight: 81.6475 kg

DRUGS (5)
  1. FENTANYL [Suspect]
     Indication: POST HERPETIC NEURALGIA
     Dosage: 1 PATCH   EVERY 2 DAYS   TRANSDERMAL
     Route: 062
     Dates: start: 20050301, end: 20050330
  2. PERCOCET [Concomitant]
  3. AMANTADINE HCL [Concomitant]
  4. ESTROTEST [Concomitant]
  5. PROMETRIUM [Concomitant]

REACTIONS (4)
  - INADEQUATE ANALGESIA [None]
  - NAUSEA [None]
  - THERAPEUTIC RESPONSE UNEXPECTED WITH DRUG SUBSTITUTION [None]
  - VOMITING [None]
